FAERS Safety Report 7958357-0 (Version None)
Quarter: 2011Q4

REPORT INFORMATION
  Report Type: 
  Country: None (occurrence: None)
  Receive Date: 20111205
  Receipt Date: 20111124
  Transmission Date: 20120403
  Serious: Yes (Hospitalization)
  Sender: FDA-Public Use
  Company Number: AU-ROCHE-1016947

PATIENT
  Sex: Male
  Weight: 89 kg

DRUGS (10)
  1. PROCHLORPERAZINE [Concomitant]
     Route: 048
     Dates: start: 20110801
  2. METOCLOPRAMIDE [Concomitant]
     Route: 048
     Dates: start: 20110817
  3. CLONAZEPAM [Concomitant]
     Route: 048
     Dates: start: 20110301
  4. AVASTIN [Suspect]
     Indication: GLIOBLASTOMA
     Dates: start: 20111116
  5. RANITIDINE [Concomitant]
     Route: 048
     Dates: start: 20110801
  6. LISINOPRIL [Concomitant]
     Route: 048
     Dates: start: 20111122
  7. DOCUSATE [Concomitant]
     Route: 048
  8. CARBOPLATIN [Suspect]
     Indication: GLIOBLASTOMA
     Dates: start: 20111116
  9. IBUPROFEN [Concomitant]
     Route: 048
  10. RAMIPRIL [Concomitant]
     Route: 048
     Dates: start: 20020101, end: 20111122

REACTIONS (2)
  - METASTASES TO MENINGES [None]
  - HYPERTENSION [None]
